FAERS Safety Report 18933188 (Version 1)
Quarter: 2021Q1

REPORT INFORMATION
  Report Type: Spontaneous
  Country: US (occurrence: US)
  Receive Date: 20210223
  Receipt Date: 20210223
  Transmission Date: 20210420
  Serious: Yes (Hospitalization)
  Sender: FDA-Public Use
  Company Number: None

PATIENT
  Sex: Male

DRUGS (2)
  1. GAMMAGARD LIQUID [Suspect]
     Active Substance: HUMAN IMMUNOGLOBULIN G
     Indication: HYPOGAMMAGLOBULINAEMIA
     Dosage: ?          OTHER STRENGTH:5GM/50ML;OTHER FREQUENCY:EVERY 4?6 WEEKS;?
     Route: 042
     Dates: start: 20210120
  2. ACETAMINOPHEN. [Suspect]
     Active Substance: ACETAMINOPHEN
     Indication: HYPOGAMMAGLOBULINAEMIA
     Dosage: ?          OTHER DOSE:1?2 TABLETS;?
     Route: 048
     Dates: start: 20210120

REACTIONS (1)
  - Headache [None]
